FAERS Safety Report 5200948-4 (Version None)
Quarter: 2007Q1

REPORT INFORMATION
  Report Type: 
  Country: None (occurrence: None)
  Receive Date: 20070103
  Receipt Date: 20061220
  Transmission Date: 20070707
  Serious: Yes (Other)
  Sender: FDA-Public Use
  Company Number: GXKR2006GB08335

PATIENT
  Age: 38 Year
  Sex: Female
  Weight: 60 kg

DRUGS (2)
  1. CEFUROXIME [Suspect]
     Indication: SEPSIS
     Dosage: INTRAVENOUS
     Route: 042
     Dates: start: 20061116, end: 20061116
  2. ACETAMINOPHEN [Concomitant]

REACTIONS (3)
  - LOCAL SWELLING [None]
  - PHARYNGEAL OEDEMA [None]
  - PRURITUS [None]
